FAERS Safety Report 5863089-9 (Version None)
Quarter: 2008Q3

REPORT INFORMATION
  Report Type: 
  Country: None (occurrence: None)
  Receive Date: 20080828
  Receipt Date: 20080825
  Transmission Date: 20090109
  Serious: Yes (Hospitalization, Other)
  Sender: FDA-Public Use
  Company Number: AU-AVENTIS-200815409GDDC

PATIENT
  Age: 63 Year
  Sex: Male

DRUGS (12)
  1. LANTUS [Suspect]
     Route: 058
  2. AUTOPEN INSULIN INJECTION PEN [Suspect]
  3. NOVORAPID [Concomitant]
  4. AMLODIPINE [Concomitant]
     Route: 048
  5. AMITRIPTYLINE HCL [Concomitant]
     Route: 048
  6. OXYCODONE HCL [Concomitant]
     Route: 048
  7. ASPIRIN [Concomitant]
     Route: 048
  8. NITROGLYCERIN [Concomitant]
     Dosage: DOSE QUANTITY: 10; DOSE UNIT: MILLIGRAM PER 24 HOURS
     Route: 061
  9. GABAPENTIN [Concomitant]
     Route: 048
  10. METAPROLOL [Concomitant]
     Route: 048
  11. IRBESARTAN [Concomitant]
     Route: 048
  12. FRUSEMIDE [Concomitant]
     Route: 048

REACTIONS (1)
  - RENAL FAILURE [None]
